FAERS Safety Report 19468870 (Version 1)
Quarter: 2021Q2

REPORT INFORMATION
  Report Type: Report from Study
  Country: FR (occurrence: FR)
  Receive Date: 20210628
  Receipt Date: 20210628
  Transmission Date: 20210717
  Serious: Yes (Hospitalization)
  Sender: FDA-Public Use
  Company Number: FR-MYLANLABS-2021M1037517

PATIENT
  Age: 30 Year
  Sex: Female

DRUGS (4)
  1. BENZYLTHIOURACIL [Suspect]
     Active Substance: BENZYLTHIOURACIL
     Indication: HYPERTHYROIDISM
  2. PREDNISONE. [Suspect]
     Active Substance: PREDNISONE
     Indication: BASEDOW^S DISEASE
     Dosage: 60 MILLIGRAM, QD
     Route: 065
  3. PREDNISONE. [Suspect]
     Active Substance: PREDNISONE
     Indication: HYPERTHYROIDISM
  4. BENZYLTHIOURACIL [Suspect]
     Active Substance: BENZYLTHIOURACIL
     Indication: BASEDOW^S DISEASE
     Dosage: 75 MILLIGRAM, QD
     Route: 065

REACTIONS (1)
  - Drug ineffective [Unknown]
